FAERS Safety Report 4425547-3 (Version None)
Quarter: 2004Q3

REPORT INFORMATION
  Report Type: 
  Country: None (occurrence: None)
  Receive Date: 20040810
  Receipt Date: 20040727
  Transmission Date: 20050211
  Serious: Yes (Hospitalization)
  Sender: FDA-Public Use
  Company Number: 2004225839US

PATIENT
  Age: 74 Year
  Sex: Male

DRUGS (7)
  1. CAMPTOSAR [Suspect]
     Indication: GASTROINTESTINAL CARCINOMA
  2. CITALOPRAM [Suspect]
     Indication: DEPRESSION
  3. VASOTEC [Concomitant]
  4. XANAX [Concomitant]
  5. ZOCOR [Concomitant]
  6. NITROSTAT [Concomitant]
  7. ASPIRIN [Concomitant]

REACTIONS (3)
  - DEPRESSION [None]
  - DRUG INTERACTION [None]
  - RHABDOMYOLYSIS [None]
